FAERS Safety Report 16384689 (Version 5)
Quarter: 2019Q3

REPORT INFORMATION
  Report Type: Report from Study
  Country: US (occurrence: US)
  Receive Date: 20190603
  Receipt Date: 20190906
  Transmission Date: 20191004
  Serious: Yes (Hospitalization)
  Sender: FDA-Public Use
  Company Number: US-JNJFOC-20181223306

PATIENT
  Age: 62 Year
  Sex: Female

DRUGS (13)
  1. IBUPROFEN. [Concomitant]
     Active Substance: IBUPROFEN
  2. CENTRUM [Concomitant]
     Active Substance: VITAMINS
  3. FISH OIL [Concomitant]
     Active Substance: FISH OIL
  4. OMEPRAZOLE. [Concomitant]
     Active Substance: OMEPRAZOLE
  5. ZYRTEC [Concomitant]
     Active Substance: CETIRIZINE HYDROCHLORIDE
  6. ASPIRIN. [Concomitant]
     Active Substance: ASPIRIN
  7. POLYETHYLENE GLYCOL [Concomitant]
     Active Substance: POLYETHYLENE GLYCOLS
  8. IMBRUVICA [Suspect]
     Active Substance: IBRUTINIB
     Route: 048
     Dates: start: 20190105
  9. IMBRUVICA [Suspect]
     Active Substance: IBRUTINIB
     Indication: CHRONIC LYMPHOCYTIC LEUKAEMIA
     Route: 048
     Dates: start: 20181208
  10. IMODIUM A-D [Concomitant]
     Active Substance: LOPERAMIDE HYDROCHLORIDE
  11. HYDROCHLOROTHIAZIDE. [Concomitant]
     Active Substance: HYDROCHLOROTHIAZIDE
  12. TYLENOL [Concomitant]
     Active Substance: ACETAMINOPHEN
  13. METOPROLOL TARTRATE. [Concomitant]
     Active Substance: METOPROLOL TARTRATE

REACTIONS (20)
  - Bone pain [Unknown]
  - Benign neoplasm of thyroid gland [Unknown]
  - Goitre [Unknown]
  - Faeces hard [Unknown]
  - Haemorrhage [Unknown]
  - Abdominal pain [Unknown]
  - Decreased appetite [Unknown]
  - Product dose omission [Unknown]
  - Contusion [Unknown]
  - Fatigue [Unknown]
  - White blood cell count increased [Recovering/Resolving]
  - Constipation [Not Recovered/Not Resolved]
  - Dermatitis allergic [Unknown]
  - Nasopharyngitis [Not Recovered/Not Resolved]
  - Stomatitis [Unknown]
  - Rash [Unknown]
  - Abdominal distension [Unknown]
  - Weight increased [Unknown]
  - Skin laceration [Unknown]
  - Hypersensitivity [Unknown]

NARRATIVE: CASE EVENT DATE: 201812
